FAERS Safety Report 23502460 (Version 1)
Quarter: 2024Q1

REPORT INFORMATION
  Report Type: Spontaneous
  Country: US (occurrence: US)
  Receive Date: 20240208
  Receipt Date: 20240208
  Transmission Date: 20240409
  Serious: No
  Sender: FDA-Public Use
  Company Number: US-INTRA-CELLULAR THERAPIES, INC.-2023ICT00087

PATIENT
  Sex: Female

DRUGS (5)
  1. CAPLYTA [Suspect]
     Active Substance: LUMATEPERONE
     Indication: Bipolar disorder
     Dosage: 10.5 MG, 1X/DAY
     Route: 048
     Dates: start: 20230109, end: 202301
  2. CAPLYTA [Suspect]
     Active Substance: LUMATEPERONE
     Dosage: 21 MG, 1X/DAY
     Route: 048
     Dates: start: 202301
  3. LITHIUM [Concomitant]
     Active Substance: LITHIUM
     Dosage: TAPERED DOWN
  4. LITHIUM [Concomitant]
     Active Substance: LITHIUM
     Dosage: 75 MG, 1X/DAY AT BEDTIME
  5. DEPAKOTE [Concomitant]
     Active Substance: DIVALPROEX SODIUM
     Dosage: UNK
     Dates: end: 20230116

REACTIONS (1)
  - Middle insomnia [Not Recovered/Not Resolved]

NARRATIVE: CASE EVENT DATE: 20230101
